FAERS Safety Report 9943475 (Version 2)
Quarter: 2014Q1

REPORT INFORMATION
  Report Type: Spontaneous
  Country: US (occurrence: US)
  Receive Date: 20140303
  Receipt Date: 20140303
  Transmission Date: 20141002
  Serious: No
  Sender: FDA-Public Use
  Company Number: US-ABBVIE-11P-163-0856701-00

PATIENT
  Age: 34 Year
  Sex: Female
  Weight: 68.1 kg

DRUGS (6)
  1. HUMIRA [Suspect]
     Indication: CROHN^S DISEASE
     Route: 050
     Dates: start: 201008
  2. HUMIRA [Suspect]
     Route: 050
     Dates: end: 201301
  3. REMICADE [Suspect]
     Indication: CROHN^S DISEASE
  4. BIRTH CONTROL PILLS [Concomitant]
     Indication: HORMONE THERAPY
  5. PRENATAL VITAMINS [Concomitant]
     Indication: VITAMIN SUPPLEMENTATION
  6. PITOCIN [Concomitant]
     Indication: INDUCED LABOUR
     Dates: start: 201103, end: 201103

REACTIONS (7)
  - Injection site pain [Not Recovered/Not Resolved]
  - Injection site swelling [Not Recovered/Not Resolved]
  - Crohn^s disease [Recovered/Resolved]
  - Sinusitis [Not Recovered/Not Resolved]
  - Abdominal pain upper [Not Recovered/Not Resolved]
  - Crohn^s disease [Recovered/Resolved]
  - Drug hypersensitivity [Unknown]
